FAERS Safety Report 4714852-9 (Version None)
Quarter: 2005Q3

REPORT INFORMATION
  Report Type: 
  Country: None (occurrence: None)
  Receive Date: 20050715
  Receipt Date: 20050608
  Transmission Date: 20060218
  Serious: Yes (Death, Other)
  Sender: FDA-Public Use
  Company Number: 200515308GDDC

PATIENT
  Age: 55 Year
  Sex: Female
  Weight: 68 kg

DRUGS (8)
  1. ENOXAPARIN SODIUM [Suspect]
     Indication: MYOCARDIAL INFARCTION
     Dosage: DOSE: ENOXAPARIN BOLUS 30MG
     Route: 040
  2. ASPIRIN [Suspect]
     Indication: MYOCARDIAL INFARCTION
     Route: 048
     Dates: start: 20050605, end: 20050606
  3. RTPA [Suspect]
     Indication: MYOCARDIAL INFARCTION
     Route: 042
     Dates: start: 20050605, end: 20050605
  4. SIMVASTATIN [Concomitant]
     Route: 048
     Dates: start: 20050605, end: 20050608
  5. DOPAMINE HCL [Concomitant]
     Indication: HYPOTENSION
     Route: 042
     Dates: start: 20050605, end: 20050606
  6. CLOXACILLIN [Concomitant]
     Route: 048
     Dates: start: 20050608, end: 20050608
  7. METOPROLOL [Concomitant]
     Route: 048
     Dates: start: 20050608, end: 20050609
  8. PERINDOPRIL [Concomitant]
     Dates: start: 20050609, end: 20050609

REACTIONS (10)
  - ARRHYTHMIA [None]
  - CARDIAC ARREST [None]
  - FALL [None]
  - HAEMATEMESIS [None]
  - HAEMOGLOBIN DECREASED [None]
  - HYPOTENSION [None]
  - MYOCARDIAL INFARCTION [None]
  - OESOPHAGEAL RUPTURE [None]
  - POST PROCEDURAL COMPLICATION [None]
  - UPPER GASTROINTESTINAL HAEMORRHAGE [None]
